FAERS Safety Report 6542025-6 (Version None)
Quarter: 2010Q1

REPORT INFORMATION
  Report Type: 
  Country: None (occurrence: None)
  Receive Date: 20100119
  Receipt Date: 20100111
  Transmission Date: 20100710
  Serious: Yes (Other)
  Sender: FDA-Public Use
  Company Number: US-BAYER-200941509NA

PATIENT
  Age: 30 Year
  Sex: Female
  Weight: 60 kg

DRUGS (1)
  1. MIRENA [Suspect]
     Indication: CONTRACEPTION
     Dosage: CONTINUOUS
     Route: 015
     Dates: start: 20080903, end: 20091022

REACTIONS (5)
  - ABDOMINAL PAIN [None]
  - GASTROINTESTINAL DISORDER [None]
  - NAUSEA [None]
  - UTERINE INFLAMMATION [None]
  - WEIGHT DECREASED [None]
